FAERS Safety Report 7480858-2 (Version None)
Quarter: 2011Q2

REPORT INFORMATION
  Report Type: 
  Country: None (occurrence: None)
  Receive Date: 20110516
  Receipt Date: 20110506
  Transmission Date: 20111010
  Serious: Yes (Other)
  Sender: FDA-Public Use
  Company Number: PHHY2011US39631

PATIENT
  Age: 31 Year

DRUGS (1)
  1. GILENYA [Suspect]
     Indication: RELAPSING-REMITTING MULTIPLE SCLEROSIS
     Dosage: 0.5 MG, DAILY
     Route: 048
     Dates: start: 20110305

REACTIONS (5)
  - FEELING OF BODY TEMPERATURE CHANGE [None]
  - HOT FLUSH [None]
  - SOMNOLENCE [None]
  - ASTHENIA [None]
  - TREMOR [None]
